FAERS Safety Report 5391698-2 (Version None)
Quarter: 2007Q3

REPORT INFORMATION
  Report Type: 
  Country: None (occurrence: None)
  Receive Date: 20070717
  Receipt Date: 20070712
  Transmission Date: 20080115
  Serious: Yes (Hospitalization)
  Sender: FDA-Public Use
  Company Number: 200707AGG00664

PATIENT
  Age: 40 Year

DRUGS (3)
  1. AGGRASTAT [Suspect]
     Indication: ELECTROCARDIOGRAM ST SEGMENT ELEVATION
     Dosage: (7.5 ML (STOPPED PREMATURELY) INTRAVENOUS (NOT OTHERWISE SPECIFIED)
     Route: 042
     Dates: start: 20070629, end: 20070629
  2. CLOPIDOGREL BISULFATE (TO UNKNOWN) [Concomitant]
  3. ASPIRIN /00002701/ (TO UNKNOWN) [Concomitant]

REACTIONS (1)
  - GASTRIC PERFORATION [None]
